FAERS Safety Report 20438342 (Version 1)
Quarter: 2022Q1

REPORT INFORMATION
  Report Type: Spontaneous
  Country: NO (occurrence: NO)
  Receive Date: 20220207
  Receipt Date: 20220207
  Transmission Date: 20220423
  Serious: Yes (Life-Threatening)
  Sender: FDA-Public Use
  Company Number: None

PATIENT
  Age: 25 Year
  Sex: Female
  Weight: 79 kg

DRUGS (7)
  1. VOLTAREN [Suspect]
     Active Substance: DICLOFENAC SODIUM
     Indication: Turbinectomy
     Dosage: 50 MG 3 TIMES A DAY FOR 14 DAYS
     Route: 048
     Dates: start: 20220111, end: 20220115
  2. VOLTAREN [Suspect]
     Active Substance: DICLOFENAC SODIUM
     Indication: Pain
  3. VOLTAREN [Suspect]
     Active Substance: DICLOFENAC SODIUM
     Indication: Nasal septal operation
  4. DIANE (CYPROTERONE ACETATE\ETHINYL ESTRADIOL) [Concomitant]
     Active Substance: CYPROTERONE ACETATE\ETHINYL ESTRADIOL
     Indication: Contraception
     Dosage: UNK UNK, QD (2 MG/35 UG)
     Route: 065
     Dates: start: 202105
  5. PARALGIN FORTE [Concomitant]
     Indication: Procedural pain
     Dosage: WHEN NEEDED. DID NOT USE THE DAY PRIOR THE ALLERGIC REACTION
     Route: 065
     Dates: start: 20220111
  6. WEIFAPENIN [Concomitant]
     Indication: Turbinectomy
     Dosage: 4 TIMES A DAY FOR 14 DAYS
     Route: 065
     Dates: start: 20220111
  7. WEIFAPENIN [Concomitant]
     Indication: Nasal septal operation

REACTIONS (11)
  - Chest discomfort [Recovered/Resolved]
  - Hypersensitivity [Recovered/Resolved]
  - Dyspnoea [Recovered/Resolved]
  - General physical health deterioration [Unknown]
  - Erythema [Unknown]
  - Rash [Recovered/Resolved]
  - Fatigue [Unknown]
  - Malaise [Unknown]
  - Throat irritation [Unknown]
  - Abdominal pain [Unknown]
  - Pruritus [Recovered/Resolved]

NARRATIVE: CASE EVENT DATE: 20220111
